FAERS Safety Report 8251145-X (Version None)
Quarter: 2012Q2

REPORT INFORMATION
  Report Type: 
  Country: None (occurrence: None)
  Receive Date: 20120402
  Receipt Date: 20120322
  Transmission Date: 20120825
  Serious: Yes (Death)
  Sender: FDA-Public Use
  Company Number: US-SANOFI-AVENTIS-2012SA021037

PATIENT

DRUGS (1)
  1. FERRLECIT [Suspect]
     Dosage: STANDARDIZED TO 100 MG DEG OF IRON
     Route: 042

REACTIONS (1)
  - DEATH [None]
